FAERS Safety Report 5861731-X (Version None)
Quarter: 2008Q3

REPORT INFORMATION
  Report Type: 
  Country: None (occurrence: None)
  Receive Date: 20080827
  Receipt Date: 20080710
  Transmission Date: 20090109
  Serious: No
  Sender: FDA-Public Use
  Company Number: US-ABBOTT-08P-163-0459348-00

PATIENT
  Sex: Male
  Weight: 68.1 kg

DRUGS (4)
  1. NIASPAN [Suspect]
     Indication: HIGH DENSITY LIPOPROTEIN DECREASED
     Route: 048
     Dates: start: 20070301, end: 20070401
  2. NIASPAN [Suspect]
     Dosage: 500MG AT BEDTIME
     Route: 048
     Dates: start: 20080501
  3. NIASPAN [Suspect]
     Dosage: ONE DAILY AT BEDTIME
     Route: 048
     Dates: start: 20070401, end: 20080501
  4. PRAVASTATIN [Concomitant]
     Indication: BLOOD CHOLESTEROL INCREASED

REACTIONS (2)
  - BLOOD GLUCOSE INCREASED [None]
  - FLUSHING [None]
